FAERS Safety Report 13010714 (Version 1)
Quarter: 2016Q4

REPORT INFORMATION
  Report Type: Spontaneous
  Country: US (occurrence: US)
  Receive Date: 20161208
  Receipt Date: 20161208
  Transmission Date: 20170207
  Serious: Yes (Other)
  Sender: FDA-Public Use
  Company Number: US-AMGEN-USASP2016123402

PATIENT
  Age: 55 Year
  Sex: Male

DRUGS (2)
  1. BLINCYTO [Suspect]
     Active Substance: BLINATUMOMAB
     Dosage: 28 MUG, QD
     Route: 065
  2. BLINCYTO [Suspect]
     Active Substance: BLINATUMOMAB
     Indication: ACUTE LYMPHOCYTIC LEUKAEMIA
     Dosage: 9 MUG, QD
     Route: 065
     Dates: start: 20160707

REACTIONS (8)
  - Cough [Unknown]
  - Platelet count decreased [Unknown]
  - Lung infiltration [Unknown]
  - Chills [Unknown]
  - Delirium [Unknown]
  - Dyspnoea [Unknown]
  - Pyrexia [Unknown]
  - Tremor [Unknown]

NARRATIVE: CASE EVENT DATE: 2016
